FAERS Safety Report 10045093 (Version 2)
Quarter: 2014Q1

REPORT INFORMATION
  Report Type: Spontaneous
  Country: BR (occurrence: BR)
  Receive Date: 20140328
  Receipt Date: 20140328
  Transmission Date: 20141002
  Serious: Yes (Other)
  Sender: FDA-Public Use
  Company Number: BR-VERTEX PHARMACEUTICALS INC-2014-001274

PATIENT
  Sex: 0

DRUGS (1)
  1. INCIVO [Suspect]
     Indication: HEPATITIS C
     Route: 065

REACTIONS (4)
  - Hyperthermia [Unknown]
  - Abscess [Unknown]
  - Anaemia [Unknown]
  - Haemorrhoids [Unknown]
